FAERS Safety Report 8003524-3 (Version None)
Quarter: 2011Q4

REPORT INFORMATION
  Report Type: 
  Country: None (occurrence: None)
  Receive Date: 20111222
  Receipt Date: 20111219
  Transmission Date: 20120403
  Serious: No
  Sender: FDA-Public Use
  Company Number: US-PFIZER INC-2011258379

PATIENT
  Sex: Female
  Weight: 56.236 kg

DRUGS (7)
  1. PROTONIX [Suspect]
     Indication: GASTROOESOPHAGEAL REFLUX DISEASE
     Dosage: 40 MG, 2X/DAY
  2. PROTONIX [Suspect]
     Dosage: 40 MG, 2X/DAY
     Route: 048
     Dates: start: 20110901
  3. FLOVENT [Concomitant]
     Dosage: UNK
  4. PROTONIX [Suspect]
     Dosage: 40 MG, 2X/DAY
     Route: 048
     Dates: end: 20110101
  5. GABAPENTIN [Concomitant]
     Indication: BACK INJURY
     Dosage: UNK
     Dates: start: 20020101
  6. PROTONIX [Suspect]
     Dosage: UNK
     Dates: start: 20110801
  7. ACETYLSALICYLIC ACID [Concomitant]
     Dosage: 81 MG, UNK

REACTIONS (9)
  - TREMOR [None]
  - ASTHENIA [None]
  - FEELING COLD [None]
  - ASTHMA [None]
  - PAIN [None]
  - DIARRHOEA [None]
  - CONSTIPATION [None]
  - THYROID FUNCTION TEST ABNORMAL [None]
  - HYPERTENSION [None]
